FAERS Safety Report 10902687 (Version 3)
Quarter: 2015Q2

REPORT INFORMATION
  Report Type: Spontaneous
  Country: US (occurrence: US)
  Receive Date: 20150310
  Receipt Date: 20150417
  Transmission Date: 20150821
  Serious: Yes (Hospitalization)
  Sender: FDA-Public Use
  Company Number: US-009507513-1503USA001960

PATIENT
  Age: 80 Year
  Sex: Female

DRUGS (10)
  1. DULERA [Suspect]
     Active Substance: FORMOTEROL FUMARATE DIHYDRATE\MOMETASONE FUROATE
     Dosage: TWO PUFFS AT NIGHT
     Route: 055
     Dates: start: 2013
  2. BYSTOLIC [Concomitant]
     Active Substance: NEBIVOLOL HYDROCHLORIDE
  3. SCHIFF MEGARED OMEGA-3 KRILL OIL [Concomitant]
  4. MORPHINE [Concomitant]
     Active Substance: MORPHINE
  5. CLONAZEPAM. [Concomitant]
     Active Substance: CLONAZEPAM
  6. LEVALBUTEROL [Concomitant]
     Active Substance: LEVALBUTEROL
  7. OCUVITE [Concomitant]
     Active Substance: VITAMINS
  8. DULERA [Suspect]
     Active Substance: FORMOTEROL FUMARATE DIHYDRATE\MOMETASONE FUROATE
     Indication: ASTHMA
     Dosage: TWO PUFFS IN THE MORNING
     Route: 055
     Dates: start: 2013
  9. ZOCOR [Concomitant]
     Active Substance: SIMVASTATIN
     Route: 048
  10. POTASSIUM (UNSPECIFIED) [Concomitant]
     Active Substance: POTASSIUM

REACTIONS (8)
  - Dyspnoea [Recovered/Resolved]
  - Dysphonia [Unknown]
  - Panic attack [Recovering/Resolving]
  - Breath sounds abnormal [Recovering/Resolving]
  - Nasopharyngitis [Recovered/Resolved]
  - Product quality issue [Unknown]
  - Gastrooesophageal reflux disease [Recovered/Resolved]
  - Incorrect dose administered [Unknown]

NARRATIVE: CASE EVENT DATE: 201403
